FAERS Safety Report 5929290-0 (Version None)
Quarter: 2008Q4

REPORT INFORMATION
  Report Type: 
  Country: None (occurrence: None)
  Receive Date: 20081023
  Receipt Date: 20081023
  Transmission Date: 20090506
  Serious: Yes (Other)
  Sender: FDA-Public Use
  Company Number: None

PATIENT
  Age: 47 Year
  Sex: Female
  Weight: 70.3075 kg

DRUGS (1)
  1. METHYLPHENIDATE HCL [Suspect]
     Indication: NARCOLEPSY
     Dosage: 20 MG 3 DAILY PO
     Route: 048
     Dates: start: 20081016, end: 20081022

REACTIONS (6)
  - FEELING ABNORMAL [None]
  - HEADACHE [None]
  - IMPAIRED DRIVING ABILITY [None]
  - NAUSEA [None]
  - PRODUCT QUALITY ISSUE [None]
  - TREMOR [None]
